FAERS Safety Report 4422040-9 (Version None)
Quarter: 2004Q3

REPORT INFORMATION
  Report Type: 
  Country: None (occurrence: None)
  Receive Date: 20040805
  Receipt Date: 20040723
  Transmission Date: 20050211
  Serious: Yes (Other)
  Sender: FDA-Public Use
  Company Number: A0520196A

PATIENT
  Age: 57 Year
  Sex: Female

DRUGS (3)
  1. COMMIT [Suspect]
     Indication: NICOTINE DEPENDENCE
     Dosage: 2MG/UNK; TRANSBUCCAL
     Route: 061
     Dates: start: 20040610
  2. ATORVASTATIN CALCIUM [Concomitant]
  3. ASPIRIN [Concomitant]

REACTIONS (1)
  - DRUG DEPENDENCE [None]
